FAERS Safety Report 5535442-4 (Version None)
Quarter: 2007Q4

REPORT INFORMATION
  Report Type: 
  Country: None (occurrence: None)
  Receive Date: 20071206
  Receipt Date: 20071128
  Transmission Date: 20080405
  Serious: Yes (Hospitalization)
  Sender: FDA-Public Use
  Company Number: FR-PFIZER INC-2007100062

PATIENT
  Sex: Female

DRUGS (14)
  1. TAHOR [Suspect]
     Indication: HYPERCHOLESTEROLAEMIA
     Route: 048
  2. FUROSEMIDE [Concomitant]
  3. DIGOXIN [Concomitant]
     Dosage: TEXT:ONE PER DAY
  4. POTASSIUM SODIUM TARTRATE [Concomitant]
     Dosage: TEXT:ONE PER DAY DURING 5 DAYS PER WEEK
  5. HALOPERIDOL [Concomitant]
     Dosage: TEXT:2 DROPS IN EVENING
  6. ORELOX [Concomitant]
  7. SOLUPRED [Concomitant]
  8. SERETIDE [Concomitant]
  9. CARBOCISTEINE [Concomitant]
  10. AUGMENTIN [Concomitant]
  11. VENTOLIN [Concomitant]
  12. ATROVENT [Concomitant]
  13. SINTROM [Concomitant]
  14. BRICANYL [Concomitant]

REACTIONS (1)
  - LUNG DISORDER [None]
